FAERS Safety Report 17841865 (Version 2)
Quarter: 2020Q4

REPORT INFORMATION
  Report Type: Spontaneous
  Country: NP (occurrence: NP)
  Receive Date: 20200529
  Receipt Date: 20201206
  Transmission Date: 20210113
  Serious: Yes (Death, Hospitalization)
  Sender: FDA-Public Use
  Company Number: NVSC2020NP148612

PATIENT
  Sex: Male

DRUGS (1)
  1. GLIVEC [Suspect]
     Active Substance: IMATINIB MESYLATE
     Indication: GASTROINTESTINAL STROMAL TUMOUR
     Dosage: 400 MG, OT, (4 X 100 MG TABLETS)
     Route: 065

REACTIONS (3)
  - Blood sodium decreased [Unknown]
  - Dysuria [Unknown]
  - Death [Fatal]
